FAERS Safety Report 18797264 (Version 3)
Quarter: 2021Q2

REPORT INFORMATION
  Report Type: Report from Study
  Country: US (occurrence: US)
  Receive Date: 20210127
  Receipt Date: 20210615
  Transmission Date: 20210717
  Serious: No
  Sender: FDA-Public Use
  Company Number: NVSC2021US015094

PATIENT
  Sex: Male

DRUGS (1)
  1. ADAKVEO [Suspect]
     Active Substance: CRIZANLIZUMAB-TMCA
     Indication: SICKLE CELL DISEASE
     Dosage: UNK, QMO (FORMULATION SOLUTION) (IV INTO BLOODSTREAM VIA VEIN)
     Route: 042

REACTIONS (2)
  - Drug ineffective [Unknown]
  - Therapy non-responder [Unknown]
